FAERS Safety Report 7986186-0 (Version None)
Quarter: 2011Q4

REPORT INFORMATION
  Report Type: 
  Country: None (occurrence: None)
  Receive Date: 20111216
  Receipt Date: 20111213
  Transmission Date: 20120403
  Serious: Yes (Death)
  Sender: FDA-Public Use
  Company Number: US-GLAXOSMITHKLINE-A0930081A

PATIENT
  Age: 57 Year
  Sex: Male
  Weight: 111.4 kg

DRUGS (3)
  1. ACCUPRIL [Concomitant]
     Dosage: 10MG TWICE PER DAY
     Route: 048
  2. ASPIRIN [Concomitant]
     Dosage: 81MG PER DAY
     Route: 048
  3. COREG [Suspect]
     Indication: PRODUCT USED FOR UNKNOWN INDICATION
     Dosage: 25MG TWICE PER DAY
     Route: 048
     Dates: start: 20090205, end: 20110514

REACTIONS (6)
  - COMA [None]
  - MALAISE [None]
  - ACUTE RESPIRATORY FAILURE [None]
  - DISEASE COMPLICATION [None]
  - CARDIO-RESPIRATORY ARREST [None]
  - BRAIN NEOPLASM [None]
